FAERS Safety Report 16408684 (Version 1)
Quarter: 2019Q2

REPORT INFORMATION
  Report Type: Spontaneous
  Country: JP (occurrence: JP)
  Receive Date: 20190610
  Receipt Date: 20190610
  Transmission Date: 20190711
  Serious: Yes (Hospitalization)
  Sender: FDA-Public Use
  Company Number: JP-BAXTER-2019BAX011380

PATIENT

DRUGS (4)
  1. EXTRANEAL [Suspect]
     Active Substance: CALCIUM CHLORIDE\ICODEXTRIN\MAGNESIUM CHLORIDE\SODIUM CHLORIDE\SODIUM LACTATE
     Indication: PERITONEAL DIALYSIS
     Dosage: ONE 2L BAG
     Route: 033
  2. ISOBIDE [Concomitant]
     Active Substance: ISOSORBIDE
     Indication: MENIERE^S DISEASE
     Route: 048
  3. ISOBIDE [Concomitant]
     Active Substance: ISOSORBIDE
     Route: 048
  4. REGUNEAL LCA [Suspect]
     Active Substance: CALCIUM CHLORIDE\DEXTROSE MONOHYDRATE\HYDROCHLORIC ACID\MAGNESIUM CHLORIDE\SODIUM BICARBONATE\SODIUM CHLORIDE\SODIUM HYDROXIDE\SODIUM LACTATE
     Indication: PERITONEAL DIALYSIS
     Dosage: TWO 5L BAGS PER DAY
     Route: 033

REACTIONS (1)
  - Physical deconditioning [Unknown]
